FAERS Safety Report 6700032-4 (Version None)
Quarter: 2010Q2

REPORT INFORMATION
  Report Type: 
  Country: None (occurrence: None)
  Receive Date: 20100428
  Receipt Date: 20100111
  Transmission Date: 20101027
  Serious: Yes (Hospitalization)
  Sender: FDA-Public Use
  Company Number: PHHY2009GB55600

PATIENT
  Sex: Male

DRUGS (16)
  1. CLOZARIL [Suspect]
     Indication: SCHIZOAFFECTIVE DISORDER
     Dosage: 100 MG MANE, 200 MG NOCTE
     Dates: start: 19980930
  2. CLOZARIL [Suspect]
     Dosage: UNK
     Dates: start: 20100105
  3. BACLOFEN [Concomitant]
     Dosage: 5 MG, QD
  4. HEMINEVRIN [Concomitant]
     Dosage: 192 MG NOCTE
  5. DOMPERIDONE [Concomitant]
     Dosage: 10 MG, BID
  6. FUROSEMIDE [Concomitant]
     Dosage: 40 MG MANE
  7. VALPROATE SODIUM [Concomitant]
     Dosage: 500 MG, BID
  8. BISACODYL [Concomitant]
     Dosage: 5 MG, PRN
  9. SIMVASTATIN [Concomitant]
  10. RANITIDINE [Concomitant]
     Dosage: 150 MG, BID
  11. OXYBUTYNIN CHLORIDE [Concomitant]
     Dosage: 5 MG, BID
  12. PARACETAMOL [Concomitant]
     Dosage: 1 G, QD
  13. MOVICOL [Concomitant]
     Dosage: 1 SACHET BID
  14. SENNA [Concomitant]
  15. DOCUSATE [Concomitant]
     Dosage: 1 CAPSULE BID
  16. FERROUS SULFATE TAB [Concomitant]
     Dosage: 200 MG DAILY

REACTIONS (5)
  - BLOOD CHOLESTEROL INCREASED [None]
  - DECUBITUS ULCER [None]
  - GANGRENE [None]
  - LEG AMPUTATION [None]
  - POST PROCEDURAL INFECTION [None]
